FAERS Safety Report 5703494-4 (Version None)
Quarter: 2008Q2

REPORT INFORMATION
  Report Type: 
  Country: None (occurrence: None)
  Receive Date: 20080411
  Receipt Date: 20080402
  Transmission Date: 20081010
  Serious: Yes (Death)
  Sender: FDA-Public Use
  Company Number: US-GENENTECH-259164

PATIENT

DRUGS (3)
  1. BEVACIZUMAB [Suspect]
     Indication: NEOPLASM MALIGNANT
     Dosage: 10 MG/M2, Q2W
  2. FLUOROURACIL [Concomitant]
     Indication: NEOPLASM MALIGNANT
  3. HYDROXYUREA [Concomitant]
     Indication: NEOPLASM MALIGNANT

REACTIONS (1)
  - DEATH [None]
